FAERS Safety Report 10857559 (Version 4)
Quarter: 2015Q3

REPORT INFORMATION
  Report Type: Spontaneous
  Country: US (occurrence: US)
  Receive Date: 20150223
  Receipt Date: 20150916
  Transmission Date: 20151125
  Serious: Yes (Hospitalization, Disabling, Other)
  Sender: FDA-Public Use
  Company Number: US-009507513-1502USA008761

PATIENT
  Sex: Female

DRUGS (4)
  1. FOSAMAX [Suspect]
     Active Substance: ALENDRONATE SODIUM
     Dosage: 70 MG, UNK
     Route: 048
     Dates: start: 20031124, end: 20071219
  2. FOSAMAX [Suspect]
     Active Substance: ALENDRONATE SODIUM
     Dosage: UNK MG, UNK
     Route: 048
     Dates: start: 2000, end: 2008
  3. FOSAMAX [Suspect]
     Active Substance: ALENDRONATE SODIUM
     Indication: BONE DISORDER
     Dosage: 70 MG, UNKNOWN
     Route: 048
     Dates: start: 20000605, end: 2003
  4. FOSAMAX PLUS D [Suspect]
     Active Substance: ALENDRONATE SODIUM\CHOLECALCIFEROL
     Indication: BONE DISORDER
     Dosage: 70 MG, 2800, UNK
     Route: 048
     Dates: start: 20070207, end: 20071219

REACTIONS (14)
  - Femur fracture [Unknown]
  - Open reduction of fracture [Unknown]
  - Hypertension [Unknown]
  - Uterine cancer [Unknown]
  - Femur fracture [Unknown]
  - Gallbladder disorder [Unknown]
  - Osteoarthritis [Unknown]
  - Urinary tract infection [Unknown]
  - Coronary artery disease [Unknown]
  - Blood potassium decreased [Unknown]
  - Insomnia [Unknown]
  - Osteopenia [Unknown]
  - Vascular calcification [Unknown]
  - Gastrooesophageal reflux disease [Unknown]

NARRATIVE: CASE EVENT DATE: 200907
